FAERS Safety Report 10978572 (Version 3)
Quarter: 2016Q1

REPORT INFORMATION
  Report Type: Report from Study
  Country: AT (occurrence: AT)
  Receive Date: 20150402
  Receipt Date: 20160119
  Transmission Date: 20160525
  Serious: Yes (Death, Hospitalization, Other)
  Sender: FDA-Public Use
  Company Number: AT-INCYTE CORPORATION-2014IN000806

PATIENT
  Age: 73 Year
  Sex: Female
  Weight: 64 kg

DRUGS (4)
  1. JAKAFI [Suspect]
     Active Substance: RUXOLITINIB
     Dosage: 10 MG, BID
     Route: 048
     Dates: start: 20131203, end: 20131207
  2. JAKAFI [Suspect]
     Active Substance: RUXOLITINIB
     Dosage: UNK
     Route: 048
     Dates: start: 20140417, end: 20140426
  3. JAKAFI [Suspect]
     Active Substance: RUXOLITINIB
     Indication: MYELOFIBROSIS
     Dosage: 10 MG, QD
     Route: 048
     Dates: start: 20130607, end: 20131112
  4. JAKAFI [Suspect]
     Active Substance: RUXOLITINIB
     Dosage: 10 MG, UNK
     Route: 048
     Dates: end: 20150320

REACTIONS (10)
  - Second primary malignancy [Recovered/Resolved]
  - Febrile neutropenia [Recovered/Resolved]
  - General physical health deterioration [Not Recovered/Not Resolved]
  - Pneumonia [Recovered/Resolved]
  - Pancytopenia [Recovered/Resolved]
  - Diffuse large B-cell lymphoma [Recovered/Resolved]
  - Myelofibrosis [Fatal]
  - Vasculitis [Recovered/Resolved]
  - Febrile neutropenia [Recovered/Resolved]
  - Multiple organ dysfunction syndrome [Fatal]

NARRATIVE: CASE EVENT DATE: 20131018
